FAERS Safety Report 8281257-6 (Version None)
Quarter: 2012Q2

REPORT INFORMATION
  Report Type: 
  Country: None (occurrence: None)
  Receive Date: 20120413
  Receipt Date: 20120402
  Transmission Date: 20120825
  Serious: Yes (Other)
  Sender: FDA-Public Use
  Company Number: JP-AMGEN-JPNSP2011069377

PATIENT
  Age: 59 Year
  Sex: Male

DRUGS (4)
  1. LOXONIN [Concomitant]
     Dosage: UNK
     Route: 048
  2. ENBREL [Suspect]
     Indication: RHEUMATOID ARTHRITIS
     Dosage: 25 MG, WEEKLY
     Route: 058
     Dates: start: 20110224
  3. METHOTREXATE [Concomitant]
     Dosage: 8 MG, WEEKLY
     Route: 048
  4. FOLIAMIN [Concomitant]
     Dosage: 5 MG, WEEKLY
     Route: 048

REACTIONS (3)
  - SCLERODERMA [None]
  - INJURY [None]
  - RASH [None]
